FAERS Safety Report 5134762-5 (Version None)
Quarter: 2006Q4

REPORT INFORMATION
  Report Type: 
  Country: None (occurrence: None)
  Receive Date: 20061025
  Receipt Date: 20060605
  Transmission Date: 20070319
  Serious: Yes (Other)
  Sender: FDA-Public Use
  Company Number: PHRM2006FR01734

PATIENT
  Age: 78 Year
  Sex: Female

DRUGS (7)
  1. STALEVO 100 [Suspect]
     Indication: PARKINSON'S DISEASE
     Dosage: 600/150/37.5 MG/DAY
     Route: 048
     Dates: start: 20060227, end: 20060428
  2. MOTILIUM [Suspect]
     Indication: DYSPEPSIA
     Dosage: 20 TO 60 MG/DAY
     Route: 048
     Dates: start: 20060127, end: 20060512
  3. MODOPAR [Concomitant]
     Indication: PARKINSON'S DISEASE
     Route: 048
     Dates: start: 20040901
  4. TRIVASTAL [Concomitant]
     Indication: PARKINSON'S DISEASE
     Dosage: 100 MG/DAY
     Route: 048
     Dates: start: 20021001
  5. REQUIP [Concomitant]
     Indication: PARKINSON'S DISEASE
     Dosage: 3 MG/DAY
     Route: 048
     Dates: start: 20040901
  6. PARIET [Concomitant]
     Dosage: 1 DF, QD
     Route: 048
  7. PRETERAX [Concomitant]
     Dosage: 2 MG, QD
     Route: 048

REACTIONS (2)
  - COLITIS [None]
  - DIARRHOEA [None]
